FAERS Safety Report 8366491-9 (Version None)
Quarter: 2012Q2

REPORT INFORMATION
  Report Type: 
  Country: None (occurrence: None)
  Receive Date: 20120517
  Receipt Date: 20120510
  Transmission Date: 20120825
  Serious: No
  Sender: FDA-Public Use
  Company Number: US-TEVA-337800USA

PATIENT
  Sex: Female
  Weight: 136.2 kg

DRUGS (3)
  1. VITAMIN D [Concomitant]
     Dosage: UNKNOWN
  2. XANAX [Concomitant]
     Dosage: UNKNOWN
  3. COPAXONE [Suspect]
     Indication: MULTIPLE SCLEROSIS
     Dosage: 20 MILLIGRAM;
     Route: 058
     Dates: start: 20111230

REACTIONS (1)
  - DYSMENORRHOEA [None]
